FAERS Safety Report 20133891 (Version 1)
Quarter: 2021Q4

REPORT INFORMATION
  Report Type: Spontaneous
  Country: US (occurrence: US)
  Receive Date: 20211201
  Receipt Date: 20211201
  Transmission Date: 20220303
  Serious: No
  Sender: FDA-Public Use
  Company Number: US-CHIESI-2021CHF00046

PATIENT
  Age: 60 Year
  Sex: Male

DRUGS (8)
  1. BETHKIS [Suspect]
     Active Substance: TOBRAMYCIN
     Indication: Bone marrow transplant
     Dosage: 1 DOSAGE FORM, BID
     Route: 055
     Dates: start: 20190810
  2. BETHKIS [Suspect]
     Active Substance: TOBRAMYCIN
     Indication: Acute myeloid leukaemia
  3. BETHKIS [Suspect]
     Active Substance: TOBRAMYCIN
     Indication: Bronchiectasis
  4. BETHKIS [Suspect]
     Active Substance: TOBRAMYCIN
     Indication: Stem cell transplant
  5. BETHKIS [Suspect]
     Active Substance: TOBRAMYCIN
     Indication: Chronic obstructive pulmonary disease
  6. BETHKIS [Suspect]
     Active Substance: TOBRAMYCIN
     Indication: Pseudomonas infection
  7. BETHKIS [Suspect]
     Active Substance: TOBRAMYCIN
     Indication: Burkholderia mallei infection
  8. BETHKIS [Suspect]
     Active Substance: TOBRAMYCIN
     Indication: Burkholderia pseudomallei infection

REACTIONS (2)
  - Illness [Unknown]
  - Product use in unapproved indication [Not Recovered/Not Resolved]

NARRATIVE: CASE EVENT DATE: 20190810
